FAERS Safety Report 10238990 (Version 2)
Quarter: 2014Q3

REPORT INFORMATION
  Report Type: Spontaneous
  Country: US (occurrence: US)
  Receive Date: 20140616
  Receipt Date: 20140702
  Transmission Date: 20150326
  Serious: No
  Sender: FDA-Public Use
  Company Number: US-ROXANE LABORATORIES, INC.-2014-RO-00929RO

PATIENT
  Sex: Male
  Weight: 63 kg

DRUGS (1)
  1. PREDNISONE. [Suspect]
     Active Substance: PREDNISONE
     Indication: ECZEMA
     Dosage: 40 MG
     Route: 048

REACTIONS (2)
  - Enuresis [Recovered/Resolved]
  - Amnesia [Unknown]
